FAERS Safety Report 13370178 (Version 5)
Quarter: 2020Q2

REPORT INFORMATION
  Report Type: Report from Study
  Country: US (occurrence: US)
  Receive Date: 20170324
  Receipt Date: 20200622
  Transmission Date: 20200713
  Serious: Yes (Other)
  Sender: FDA-Public Use
  Company Number: US-JAZZ-2017-US-003540

PATIENT
  Sex: Female

DRUGS (2)
  1. XYREM [Suspect]
     Active Substance: SODIUM OXYBATE
     Indication: NARCOLEPSY
     Dosage: 3 G, BID
     Route: 048
     Dates: start: 201203, end: 201204
  2. XYREM [Suspect]
     Active Substance: SODIUM OXYBATE
     Indication: CATAPLEXY
     Dosage: 6 G, BID
     Route: 048
     Dates: start: 201204, end: 2012

REACTIONS (9)
  - Dyspepsia [Unknown]
  - Memory impairment [Not Recovered/Not Resolved]
  - Gastric disorder [Recovered/Resolved]
  - Therapeutic response unexpected [Unknown]
  - Hernia [Unknown]
  - Pruritus [Unknown]
  - Malaise [Unknown]
  - Headache [Unknown]
  - Pre-existing condition improved [Unknown]

NARRATIVE: CASE EVENT DATE: 2012
